FAERS Safety Report 9592438 (Version 1)
Quarter: 2013Q3

REPORT INFORMATION
  Report Type: Spontaneous
  Country: US (occurrence: None)
  Receive Date: 20130930
  Receipt Date: 20130930
  Transmission Date: 20140515
  Serious: Yes (Other)
  Sender: FDA-Public Use
  Company Number: 1000046499

PATIENT
  Age: 83 Year
  Sex: Female

DRUGS (6)
  1. LINZESS [Suspect]
     Indication: CONSTIPATION
     Route: 048
     Dates: start: 20130702
  2. MIRALAX(POLYETHYLENE GLYCOL)(POLYETHYLENE GLYCOL) [Concomitant]
  3. SENOKOT(SENNA)(SENNA) [Concomitant]
  4. PERCOCET(OXYCODONE, ACETAMINOPHEN)(OXYCODONE, ACETAMINOPHEN) [Concomitant]
  5. AMBIEN (ZOLPIDEM TARTRATE) (ZOLPIDEM TARTRATE) [Concomitant]
  6. PROTONIX(PANTOPRAZOLE SODIUM SESQUIHYDRATE)(PANTOPRAZOLE SODIUM SESQUIHYDRATE) [Concomitant]

REACTIONS (1)
  - Abdominal distension [None]
